FAERS Safety Report 7645534-1 (Version None)
Quarter: 2011Q3

REPORT INFORMATION
  Report Type: 
  Country: None (occurrence: None)
  Receive Date: 20110729
  Receipt Date: 20110726
  Transmission Date: 20111222
  Serious: Yes (Hospitalization, Other)
  Sender: FDA-Public Use
  Company Number: US-PFIZER INC-2011115319

PATIENT
  Sex: Female

DRUGS (5)
  1. CHANTIX [Suspect]
     Dosage: CONTINUING MONTH PACK
     Dates: start: 20091201, end: 20100101
  2. LEXAPRO [Concomitant]
     Indication: ANXIETY
     Dosage: UNK
     Dates: start: 20050101, end: 20100101
  3. KLONOPIN [Concomitant]
     Indication: MYOCARDIAL INFARCTION
  4. KLONOPIN [Concomitant]
     Indication: ANXIETY
     Dosage: UNK
     Dates: start: 20050101
  5. CHANTIX [Suspect]
     Indication: SMOKING CESSATION THERAPY
     Dosage: CONTINUING MONTH PACK
     Dates: start: 20070725, end: 20070801

REACTIONS (13)
  - JOINT DISLOCATION [None]
  - HEADACHE [None]
  - HAEMORRHAGE INTRACRANIAL [None]
  - AURICULAR HAEMATOMA [None]
  - EAR INJURY [None]
  - CONTUSION [None]
  - LOSS OF CONSCIOUSNESS [None]
  - FACIAL BONES FRACTURE [None]
  - CERVICAL VERTEBRAL FRACTURE [None]
  - MUSCULOSKELETAL PAIN [None]
  - AMNESIA [None]
  - FALL [None]
  - ARTHRALGIA [None]
